FAERS Safety Report 11903544 (Version 2)
Quarter: 2016Q1

REPORT INFORMATION
  Report Type: Report from Study
  Country: ZA (occurrence: ZA)
  Receive Date: 20160110
  Receipt Date: 20160120
  Transmission Date: 20160526
  Serious: Yes (Hospitalization)
  Sender: FDA-Public Use
  Company Number: PHHY2016ZA001562

PATIENT
  Sex: Female

DRUGS (1)
  1. ACLASTA [Suspect]
     Active Substance: ZOLEDRONIC ACID
     Indication: OSTEOPOROSIS
     Dosage: 5 MG (5 MG/100 ML), Q12MO
     Route: 065
     Dates: start: 201411, end: 201411

REACTIONS (2)
  - Wrist fracture [Unknown]
  - Back pain [Unknown]

NARRATIVE: CASE EVENT DATE: 2015
